FAERS Safety Report 10726572 (Version 1)
Quarter: 2015Q1

REPORT INFORMATION
  Report Type: Spontaneous
  Country: US (occurrence: None)
  Receive Date: 20150120
  Receipt Date: 20150120
  Transmission Date: 20150721
  Serious: Yes (Hospitalization)
  Sender: FDA-Public Use
  Company Number: None

PATIENT
  Age: 42 Year
  Sex: Female

DRUGS (12)
  1. MULTI VITAMIN [Concomitant]
     Active Substance: VITAMINS
  2. VITAMIN D, E, AND C [Concomitant]
  3. IRON [Concomitant]
     Active Substance: IRON
  4. ARMOUR THYROID [Suspect]
     Active Substance: THYROID, PORCINE\THYROID, UNSPECIFIED
     Indication: ASTHENIA
     Dates: start: 20140516, end: 20140620
  5. ARMOUR THYROID [Suspect]
     Active Substance: THYROID, PORCINE\THYROID, UNSPECIFIED
     Indication: NAUSEA
     Dates: start: 20140516, end: 20140620
  6. CALCIUM [Concomitant]
     Active Substance: CALCIUM
  7. IMMUNE BALACE SUPPLEMENT: TINSOPORA [Concomitant]
  8. ARMOUR THYROID [Suspect]
     Active Substance: THYROID, PORCINE\THYROID, UNSPECIFIED
     Indication: FATIGUE
     Dates: start: 20140516, end: 20140620
  9. ARMOUR THYROID [Suspect]
     Active Substance: THYROID, PORCINE\THYROID, UNSPECIFIED
     Indication: CYANOSIS
     Dates: start: 20140516, end: 20140620
  10. MAGNESIUM [Concomitant]
     Active Substance: MAGNESIUM
  11. FISH OIL [Concomitant]
     Active Substance: FISH OIL
  12. RX BIODENTICAL ESTROGEN AND PROGESTERONE [Concomitant]

REACTIONS (3)
  - Toxicity to various agents [None]
  - Hepatitis cholestatic [None]
  - Product quality issue [None]

NARRATIVE: CASE EVENT DATE: 20140626
